FAERS Safety Report 8949823 (Version 2)
Quarter: 2012Q4

REPORT INFORMATION
  Report Type: Report from Study
  Country: DE (occurrence: DE)
  Receive Date: 20121206
  Receipt Date: 20121210
  Transmission Date: 20130627
  Serious: Yes (Hospitalization)
  Sender: FDA-Public Use
  Company Number: DE-ROCHE-1159628

PATIENT
  Age: 71 Year
  Sex: Female
  Weight: 54 kg

DRUGS (3)
  1. BEVACIZUMAB [Suspect]
     Indication: OVARIAN CANCER
     Dosage: last dose prior to SAE 8/Nov/2012
     Route: 042
     Dates: start: 20120515
  2. CARBOPLATIN [Suspect]
     Indication: OVARIAN CANCER
     Dosage: last dose prior to SAE 4/sep/2012
     Route: 042
     Dates: start: 20120515
  3. PACLITAXEL [Suspect]
     Indication: OVARIAN CANCER
     Dosage: last dose prior to SAE 4/sep/2012
     Route: 042
     Dates: start: 20120515

REACTIONS (2)
  - Syncope [Recovered/Resolved]
  - Gastroenteritis [Recovered/Resolved]
